FAERS Safety Report 7436228-6 (Version None)
Quarter: 2011Q2

REPORT INFORMATION
  Report Type: 
  Country: None (occurrence: None)
  Receive Date: 20110425
  Receipt Date: 20110331
  Transmission Date: 20111010
  Serious: No
  Sender: FDA-Public Use
  Company Number: US-B.I. PHARMACEUTICALS,INC./RIDGEFIELD-2011-BP-09808BP

PATIENT
  Sex: Female

DRUGS (1)
  1. MICARDIS HCT [Suspect]

REACTIONS (7)
  - ABDOMINAL PAIN UPPER [None]
  - ASTHENIA [None]
  - MALAISE [None]
  - UNEVALUABLE EVENT [None]
  - CHEST DISCOMFORT [None]
  - DYSPNOEA [None]
  - DYSPHEMIA [None]
